FAERS Safety Report 23739144 (Version 1)
Quarter: 2024Q2

REPORT INFORMATION
  Report Type: Spontaneous
  Country: RO (occurrence: RO)
  Receive Date: 20240413
  Receipt Date: 20240413
  Transmission Date: 20240716
  Serious: Yes (Hospitalization)
  Sender: FDA-Public Use
  Company Number: RO-JNJFOC-20240427771

PATIENT
  Age: 76 Year
  Sex: Male

DRUGS (8)
  1. LOPERAMIDE HYDROCHLORIDE [Suspect]
     Active Substance: LOPERAMIDE HYDROCHLORIDE
     Indication: Prophylaxis
     Dosage: 4 MILLIGRAM, BID
     Route: 048
     Dates: start: 20230922, end: 20240312
  2. OXALIPLATIN [Suspect]
     Active Substance: OXALIPLATIN
     Indication: Adenocarcinoma gastric
     Dosage: 130 MILLIGRAM/SQ. METER - EVERY 3 WEEKS
     Route: 042
     Dates: start: 20230921, end: 20240305
  3. CAPECITABINE [Suspect]
     Active Substance: CAPECITABINE
     Indication: Adenocarcinoma gastric
     Dosage: 500 MILLIGRAM/SQ. METER - EVERY 3 WEEKS
     Route: 048
     Dates: start: 20230921, end: 20240312
  4. ZANIDATAMAB [Suspect]
     Active Substance: ZANIDATAMAB
     Indication: Adenocarcinoma gastric
     Dosage: 2400 MILLIGRAM - EVERY 3 WEEKS
     Route: 042
     Dates: start: 20230921, end: 20240305
  5. TISLELIZUMAB [Suspect]
     Active Substance: TISLELIZUMAB
     Indication: Adenocarcinoma gastric
     Dosage: 200 MILLIGRAM - EVERY 3 WEEKS
     Route: 042
     Dates: start: 20230921, end: 20240305
  6. INDAPAMIDE [Concomitant]
     Active Substance: INDAPAMIDE
     Indication: Myocardial ischaemia
     Route: 065
     Dates: start: 1996
  7. MONOPRIL [Concomitant]
     Active Substance: FOSINOPRIL SODIUM
     Indication: Hypertension
     Dosage: 20 MILLIGRAM
     Route: 065
     Dates: start: 1996
  8. ATORVASTATIN [Concomitant]
     Active Substance: ATORVASTATIN
     Indication: Myocardial ischaemia
     Dosage: 20 MILLIGRAM
     Route: 065
     Dates: start: 1996

REACTIONS (1)
  - Diarrhoea [Unknown]

NARRATIVE: CASE EVENT DATE: 20240314
